FAERS Safety Report 14671899 (Version 1)
Quarter: 2018Q1

REPORT INFORMATION
  Report Type: Report from Study
  Country: None (occurrence: BR)
  Receive Date: 20180323
  Receipt Date: 20180323
  Transmission Date: 20180509
  Serious: Yes (Death, Hospitalization, Other)
  Sender: FDA-Public Use
  Company Number: BR-ABBVIE-18K-020-2295483-00

PATIENT
  Age: 55 Year
  Sex: Female
  Weight: 65 kg

DRUGS (2)
  1. CALCIUM [Concomitant]
     Active Substance: CALCIUM
     Indication: PRODUCT USED FOR UNKNOWN INDICATION
  2. HUMIRA [Suspect]
     Active Substance: ADALIMUMAB
     Indication: RHEUMATOID ARTHRITIS
     Route: 058
     Dates: start: 20150520

REACTIONS (9)
  - Asthenia [Unknown]
  - Acute respiratory failure [Fatal]
  - Lymphadenitis [Not Recovered/Not Resolved]
  - Device material issue [Unknown]
  - Gait disturbance [Unknown]
  - Drug intolerance [Unknown]
  - Localised infection [Not Recovered/Not Resolved]
  - Hospitalisation [Unknown]
  - Organ failure [Fatal]

NARRATIVE: CASE EVENT DATE: 201612
